FAERS Safety Report 8579624-6 (Version None)
Quarter: 2012Q3

REPORT INFORMATION
  Report Type: 
  Country: None (occurrence: None)
  Receive Date: 20120808
  Receipt Date: 20120727
  Transmission Date: 20120928
  Serious: Yes (Other)
  Sender: FDA-Public Use
  Company Number: DE-CELGENEUS-062-21880-11060828

PATIENT
  Age: 71 Year
  Sex: Female

DRUGS (9)
  1. DEXAMETHASONE [Suspect]
     Indication: MULTIPLE MYELOMA
     Dosage: 40 MILLIGRAM
     Route: 048
     Dates: start: 20110520
  2. POLYETHYLENE GLYCOL [Concomitant]
     Route: 048
     Dates: start: 20110520
  3. REVLIMID [Suspect]
     Dosage: 25 MILLIGRAM
     Route: 048
     Dates: end: 20110628
  4. ACYCLOVIR [Suspect]
     Indication: PROPHYLAXIS
     Dosage: 800 MILLIGRAM
     Route: 048
     Dates: start: 20110520, end: 20110531
  5. ENOXAPARIN SODIUM [Concomitant]
     Indication: PROPHYLAXIS
     Dosage: .4 MILLILITER
     Route: 058
     Dates: start: 20110520
  6. COTRIM DS [Suspect]
     Indication: PROPHYLAXIS
     Route: 048
     Dates: start: 20110520, end: 20110531
  7. MORPHINE [Concomitant]
     Indication: PAIN
     Dosage: 60 MILLIGRAM
     Route: 048
     Dates: start: 20110520
  8. METAMIZOLE [Concomitant]
     Indication: PAIN
     Route: 048
     Dates: start: 20110520
  9. REVLIMID [Suspect]
     Indication: MULTIPLE MYELOMA
     Dosage: 25 MILLIGRAM
     Route: 048
     Dates: start: 20110520, end: 20110603

REACTIONS (1)
  - EXFOLIATIVE RASH [None]
